FAERS Safety Report 4694787-0 (Version None)
Quarter: 2005Q2

REPORT INFORMATION
  Report Type: 
  Country: None (occurrence: None)
  Receive Date: 20050617
  Receipt Date: 20050606
  Transmission Date: 20051028
  Serious: Yes (Other)
  Sender: FDA-Public Use
  Company Number: 2005076134

PATIENT
  Age: 57 Year
  Sex: Male
  Weight: 99.7913 kg

DRUGS (2)
  1. BEXTRA [Suspect]
     Indication: SHOULDER PAIN
     Dosage: 1 IN 1 D, ORAL
     Route: 048
     Dates: end: 20040101
  2. ASPIRIN [Concomitant]

REACTIONS (4)
  - AMNESIA [None]
  - HYPOAESTHESIA [None]
  - PARAESTHESIA [None]
  - TRANSIENT ISCHAEMIC ATTACK [None]
